FAERS Safety Report 14916439 (Version 2)
Quarter: 2018Q2

REPORT INFORMATION
  Report Type: Spontaneous
  Country: BE (occurrence: BE)
  Receive Date: 20180519
  Receipt Date: 20180528
  Transmission Date: 20180711
  Serious: Yes (Other)
  Sender: FDA-Public Use
  Company Number: BE-AUROBINDO-AUR-APL-2018-023689

PATIENT
  Age: 73 Year

DRUGS (3)
  1. SODIUM IBANDRONATE [Suspect]
     Active Substance: IBANDRONATE SODIUM
     Indication: OSTEOPOROSIS
     Dosage: UNK
     Route: 065
  2. SODIUM IBANDRONATE [Suspect]
     Active Substance: IBANDRONATE SODIUM
     Dosage: UNK ()
     Route: 065
  3. ALENDRONIC ACID TABLETS [Suspect]
     Active Substance: ALENDRONIC ACID
     Indication: OSTEOPOROSIS
     Dosage: UNK
     Route: 065

REACTIONS (2)
  - Pathological fracture [Unknown]
  - Femur fracture [Unknown]
